FAERS Safety Report 8687184 (Version 2)
Quarter: 2013Q1

REPORT INFORMATION
  Report Type: Spontaneous
  Country: BR (occurrence: BR)
  Receive Date: 20120727
  Receipt Date: 20130204
  Transmission Date: 20140127
  Serious: Yes (Other)
  Sender: FDA-Public Use
  Company Number: PHHY2012BR063876

PATIENT
  Age: 79 Year
  Sex: Female

DRUGS (3)
  1. GALVUS MET [Suspect]
     Indication: DIABETES MELLITUS
     Dosage: 1 DF (500/50MG), DAILY
  2. GALVUS MET [Suspect]
     Dosage: 1 DF (500/50 MG), BID (1 TABLET IN MORNING AND 1 IN NIGHT)
  3. DIOVAN HCT [Suspect]
     Indication: HYPERTENSION
     Dosage: 1 DF PER DAY (VALS 160 MG AND HCTZ 25 MG)
     Route: 048

REACTIONS (9)
  - Weight decreased [Recovered/Resolved]
  - Urticaria [Recovered/Resolved]
  - Rash [Recovered/Resolved]
  - Heart rate irregular [Recovered/Resolved]
  - Somnolence [Recovered/Resolved]
  - Yellow skin [Recovered/Resolved]
  - Eye colour change [Recovered/Resolved]
  - Blood glucose increased [Not Recovered/Not Resolved]
  - Decreased appetite [Unknown]
